FAERS Safety Report 23581124 (Version 3)
Quarter: 2025Q1

REPORT INFORMATION
  Report Type: Spontaneous
  Country: US (occurrence: US)
  Receive Date: 20240229
  Receipt Date: 20250108
  Transmission Date: 20250408
  Serious: No
  Sender: PFIZER
  Company Number: US-PFIZER INC-202101368231

PATIENT
  Age: 68 Year
  Sex: Female
  Weight: 99.79 kg

DRUGS (25)
  1. IBRANCE [Suspect]
     Active Substance: PALBOCICLIB
     Indication: Breast cancer metastatic
     Route: 048
     Dates: start: 20180618
  2. IBRANCE [Suspect]
     Active Substance: PALBOCICLIB
     Indication: Breast cancer female
     Route: 048
  3. BENAZEPRIL [Concomitant]
     Active Substance: BENAZEPRIL HYDROCHLORIDE
     Dosage: 1 DF, DAILY
  4. OMEPRAZOLE [Concomitant]
     Active Substance: OMEPRAZOLE
     Dosage: 40 MG, DAILY ( 1 CAPSULE DAILY AT PM MEALS TIME)
  5. METFORMIN [Concomitant]
     Active Substance: METFORMIN HYDROCHLORIDE
     Indication: Diabetes mellitus
     Dosage: 500 MG, 2X/DAY ( ONE AT THE AM MEAL, ONE AT THE PM MEAL)
  6. TRULICITY [Concomitant]
     Active Substance: DULAGLUTIDE
     Indication: Diabetes mellitus
     Dosage: UNK, WEEKLY (0.75MG/0.5ML DULAGLUTIDE INJECTION)
     Dates: start: 20210817
  7. JARDIANCE [Concomitant]
     Active Substance: EMPAGLIFLOZIN
     Indication: Diabetes mellitus
     Dosage: 25 MG, DAILY (ONE TAB DAILY AT PM MEAL)
     Dates: start: 20210921
  8. LANTUS [Concomitant]
     Active Substance: INSULIN GLARGINE
     Dosage: 5 IU, DAILY (AT PM MEALS)
  9. LANTUS [Concomitant]
     Active Substance: INSULIN GLARGINE
     Dosage: 10 IU, DAILY (AT PM MEALS)
     Dates: start: 20210913
  10. CETIRIZINE [Concomitant]
     Active Substance: CETIRIZINE HYDROCHLORIDE
     Dosage: 10 MG, 2X/DAY (10MG TAB TAKES AT AM MEAL AND PM MEAL)
  11. FLUTICASONE/OLOPATADINE [Concomitant]
     Route: 045
     Dates: start: 2013
  12. ZADITOR [Concomitant]
     Active Substance: KETOTIFEN FUMARATE
  13. DEXAMETHASONE [Concomitant]
     Active Substance: DEXAMETHASONE
     Indication: Dermatitis contact
  14. MUPIROCIN [Concomitant]
     Active Substance: MUPIROCIN
  15. FASLODEX [Concomitant]
     Active Substance: FULVESTRANT
     Dosage: 500 MG, MONTHLY
     Route: 030
     Dates: start: 2018
  16. ZOMETA [Concomitant]
     Active Substance: ZOLEDRONIC ACID
     Indication: Neoplasm malignant
     Dosage: 4 MG, EVERY 3 MONTHS
     Route: 017
     Dates: start: 20180618
  17. OLOPATADINE [Concomitant]
     Active Substance: OLOPATADINE
     Dates: start: 2013
  18. ASPIRIN [Concomitant]
     Active Substance: ASPIRIN
     Dosage: 81 MG, DAILY
  19. DOCUSATE SODIUM\SENNA LEAF [Concomitant]
     Active Substance: DOCUSATE SODIUM\SENNA LEAF
  20. CYCLOBENZAPRINE [Concomitant]
     Active Substance: CYCLOBENZAPRINE
     Indication: Muscle spasms
     Dosage: 10 MG, DAILY ( 1 TAB DAILY AT PM MEAL)
     Route: 048
  21. VITAMIN B COMPLEX NOS [Concomitant]
     Active Substance: CYANOCOBALAMIN\PYRIDOXINE HYDROCHLORIDE\RIBOFLAVIN\SODIUM PANTOTHENATE\THIAMINE HYDROCHLORIDE\VITAMI
     Dosage: UNK, 1X/DAY
  22. GAS-X [Concomitant]
     Active Substance: DIMETHICONE
  23. CORICIDIN HBP COUGH AND COLD [Concomitant]
     Active Substance: CHLORPHENIRAMINE MALEATE\DEXTROMETHORPHAN HYDROBROMIDE
     Indication: Hypertension
  24. ADVIL [Concomitant]
     Active Substance: IBUPROFEN
  25. BENAZEPRIL HYDROCHLORIDE AND HYDROCHLOROTHIAZIDE [Concomitant]
     Active Substance: BENAZEPRIL HYDROCHLORIDE\HYDROCHLOROTHIAZIDE

REACTIONS (1)
  - Alopecia [Not Recovered/Not Resolved]
